FAERS Safety Report 11496182 (Version 2)
Quarter: 2015Q3

REPORT INFORMATION
  Report Type: Spontaneous
  Country: US (occurrence: US)
  Receive Date: 20150911
  Receipt Date: 20150915
  Transmission Date: 20151125
  Serious: Yes (Hospitalization)
  Sender: FDA-Public Use
  Company Number: US-JNJFOC-20150900242

PATIENT
  Age: 29 Year
  Sex: Male

DRUGS (1)
  1. ACETAMINOPHEN. [Suspect]
     Active Substance: ACETAMINOPHEN
     Indication: SUICIDE ATTEMPT
     Dosage: 100 TABLETS (STRENGTH UNSPECIFIED)
     Route: 048

REACTIONS (6)
  - Blood alkaline phosphatase increased [Recovering/Resolving]
  - Prothrombin time prolonged [Recovering/Resolving]
  - Intentional overdose [Recovering/Resolving]
  - Aspartate aminotransferase increased [None]
  - Transaminases increased [Recovering/Resolving]
  - Alanine aminotransferase increased [None]

NARRATIVE: CASE EVENT DATE: 2015
